FAERS Safety Report 9249424 (Version 2)
Quarter: 2013Q2

REPORT INFORMATION
  Report Type: Spontaneous
  Country: AU (occurrence: AU)
  Receive Date: 20130423
  Receipt Date: 20130606
  Transmission Date: 20140414
  Serious: Yes (Other)
  Sender: FDA-Public Use
  Company Number: AU-ABBOTT-13P-008-1078436-00

PATIENT
  Age: 66 Year
  Sex: Female

DRUGS (5)
  1. HUMIRA [Suspect]
     Indication: CROHN^S DISEASE
     Dates: start: 201112
  2. PRISTIQ [Concomitant]
     Indication: DEPRESSION
  3. DIOVAN [Concomitant]
     Indication: BLOOD PRESSURE
  4. OSTELIN [Concomitant]
     Indication: VITAMIN SUPPLEMENTATION
  5. OSTELIN [Concomitant]
     Indication: MINERAL SUPPLEMENTATION

REACTIONS (7)
  - Systemic lupus erythematosus [Not Recovered/Not Resolved]
  - Photosensitivity reaction [Not Recovered/Not Resolved]
  - Skin mass [Unknown]
  - Skin irritation [Unknown]
  - Back injury [Unknown]
  - Oedema peripheral [Unknown]
  - Crohn^s disease [Unknown]
